FAERS Safety Report 25679722 (Version 1)
Quarter: 2025Q3

REPORT INFORMATION
  Report Type: Report from Study
  Country: US (occurrence: US)
  Receive Date: 20250814
  Receipt Date: 20250814
  Transmission Date: 20251020
  Serious: Yes (Death, Other)
  Sender: ABBVIE
  Company Number: US-ABBVIE-6414529

PATIENT
  Age: 75 Year
  Sex: Male

DRUGS (1)
  1. VYALEV [Suspect]
     Active Substance: FOSCARBIDOPA\FOSLEVODOPA
     Indication: Parkinson^s disease
     Route: 058
     Dates: start: 20250519, end: 20250805

REACTIONS (2)
  - Cerebrovascular accident [Fatal]
  - Sepsis [Fatal]

NARRATIVE: CASE EVENT DATE: 20250805
